FAERS Safety Report 9275106 (Version 1)
Quarter: 2013Q2

REPORT INFORMATION
  Report Type: Spontaneous
  Country: US (occurrence: None)
  Receive Date: 20130501
  Receipt Date: 20130501
  Transmission Date: 20140414
  Serious: Yes (Other)
  Sender: FDA-Public Use
  Company Number: None

PATIENT
  Age: 45 Year
  Sex: Female
  Weight: 72.58 kg

DRUGS (1)
  1. DOXIL [Suspect]
     Indication: ANDROGENETIC ALOPECIA
     Dates: start: 20130110, end: 20130417

REACTIONS (3)
  - Off label use [None]
  - Palmar-plantar erythrodysaesthesia syndrome [None]
  - Product quality issue [None]
